FAERS Safety Report 15402313 (Version 1)
Quarter: 2018Q3

REPORT INFORMATION
  Report Type: Spontaneous
  Country: JP (occurrence: JP)
  Receive Date: 20180919
  Receipt Date: 20180919
  Transmission Date: 20181010
  Serious: Yes (Hospitalization)
  Sender: FDA-Public Use
  Company Number: JP-ROCHE-2184638

PATIENT
  Sex: Female

DRUGS (1)
  1. BONVIVA [Suspect]
     Active Substance: IBANDRONATE SODIUM
     Indication: PRODUCT USED FOR UNKNOWN INDICATION
     Route: 042
     Dates: start: 2018

REACTIONS (5)
  - Pain [Unknown]
  - Bone pain [Unknown]
  - Eczema [Unknown]
  - Myalgia [Unknown]
  - Dyspnoea [Unknown]

NARRATIVE: CASE EVENT DATE: 2018
